FAERS Safety Report 5043346-9 (Version None)
Quarter: 2006Q3

REPORT INFORMATION
  Report Type: 
  Country: None (occurrence: None)
  Receive Date: 20060703
  Receipt Date: 20060703
  Transmission Date: 20061208
  Serious: Yes (Life-Threatening)
  Sender: FDA-Public Use
  Company Number: None

PATIENT
  Age: 45 Year
  Sex: Female
  Weight: 60 kg

DRUGS (1)
  1. TAXOTERE [Suspect]
     Indication: GASTRIC CANCER
     Dosage: 100 MG /M2 1 IV DRIP
     Route: 041
     Dates: start: 20060303, end: 20060303

REACTIONS (3)
  - ACUTE MYOCARDIAL INFARCTION [None]
  - ARRHYTHMIA [None]
  - EXTRASYSTOLES [None]
